FAERS Safety Report 6891847-0 (Version None)
Quarter: 2010Q3

REPORT INFORMATION
  Report Type: 
  Country: None (occurrence: None)
  Receive Date: 20100731
  Receipt Date: 20071109
  Transmission Date: 20110219
  Serious: No
  Sender: FDA-Public Use
  Company Number: US-PFIZER INC-2007095549

PATIENT
  Sex: Female
  Weight: 65.9 kg

DRUGS (3)
  1. NORVASC [Suspect]
     Indication: PULMONARY HYPERTENSION
     Route: 048
  2. FUROSEMIDE [Concomitant]
  3. SLOW-K [Concomitant]

REACTIONS (1)
  - OEDEMA PERIPHERAL [None]
